FAERS Safety Report 21672232 (Version 3)
Quarter: 2023Q4

REPORT INFORMATION
  Report Type: Spontaneous
  Country: PT (occurrence: PT)
  Receive Date: 20221202
  Receipt Date: 20231210
  Transmission Date: 20240109
  Serious: Yes (Disabling, Other)
  Sender: FDA-Public Use
  Company Number: PT-Zentiva-2022-ZT-011565

PATIENT
  Age: 52 Year
  Sex: Male

DRUGS (5)
  1. ATORVASTATIN [Suspect]
     Active Substance: ATORVASTATIN
     Indication: Dyslipidaemia
     Dosage: 20 MILLIGRAM, FOUR TIMES/DAY(20 MG, QID )
     Route: 065
     Dates: start: 202108
  2. ROSUVASTATIN [Suspect]
     Active Substance: ROSUVASTATIN
     Indication: Product used for unknown indication
     Dosage: 20 MILLIGRAM, ONCE A DAY
     Route: 065
     Dates: start: 202005
  3. SIMVASTATIN [Suspect]
     Active Substance: SIMVASTATIN
     Indication: Dyslipidaemia
     Dosage: 20 MILLIGRAM, FOUR TIMES/DAY(20 MG, QID )
     Route: 065
     Dates: start: 201910
  4. EZETIMIBE [Concomitant]
     Active Substance: EZETIMIBE
     Indication: Dyslipidaemia
     Dosage: 10 MILLIGRAM, FOUR TIMES/DAY(10 MG, QID )
     Route: 065
     Dates: start: 202005
  5. EZETIMIBE\ROSUVASTATIN [Suspect]
     Active Substance: EZETIMIBE\ROSUVASTATIN
     Indication: Dyslipidaemia
     Dosage: UNK, FOUR TIMES/DAY
     Route: 065
     Dates: start: 202005

REACTIONS (18)
  - Myalgia [Recovered/Resolved]
  - Asthenia [Recovered/Resolved]
  - Thrombocytopenia [Recovering/Resolving]
  - Hepatic cytolysis [Not Recovered/Not Resolved]
  - Sclerodactylia [Recovering/Resolving]
  - Dermatomyositis [Not Recovered/Not Resolved]
  - Paronychia [Recovering/Resolving]
  - Synovitis [Recovering/Resolving]
  - Skin lesion [Recovered/Resolved]
  - Cyanosis [Recovered/Resolved]
  - Lymphopenia [Recovering/Resolving]
  - Arthralgia [Recovered/Resolved]
  - Inflammation [Recovering/Resolving]
  - Heliotrope rash [Recovering/Resolving]
  - Haemorrhage [Recovering/Resolving]
  - Myositis [Recovering/Resolving]
  - Polyarthritis [Recovering/Resolving]
  - Arthritis [Recovered/Resolved]

NARRATIVE: CASE EVENT DATE: 20210201
